FAERS Safety Report 13121435 (Version 2)
Quarter: 2017Q1

REPORT INFORMATION
  Report Type: Spontaneous
  Country: FR (occurrence: FR)
  Receive Date: 20170117
  Receipt Date: 20170123
  Transmission Date: 20170428
  Serious: Yes (Hospitalization)
  Sender: FDA-Public Use
  Company Number: FR-GLAXOSMITHKLINE-FR2017GSK005170

PATIENT
  Age: 8 Year
  Sex: Male
  Weight: 29 kg

DRUGS (7)
  1. ADVIL [Concomitant]
     Active Substance: IBUPROFEN
     Indication: NAUSEA
  2. SCOPODERM TTS [Suspect]
     Active Substance: SCOPOLAMINE
     Indication: NAUSEA
     Dosage: 1 DF, TID
     Route: 062
     Dates: start: 20161219, end: 20161219
  3. PARACETAMOL [Concomitant]
     Active Substance: ACETAMINOPHEN
     Indication: VOMITING
  4. ADVIL [Concomitant]
     Active Substance: IBUPROFEN
     Indication: VOMITING
  5. PARACETAMOL [Concomitant]
     Active Substance: ACETAMINOPHEN
     Indication: NAUSEA
  6. ADVIL [Concomitant]
     Active Substance: IBUPROFEN
     Indication: HEADACHE
  7. PARACETAMOL [Concomitant]
     Active Substance: ACETAMINOPHEN
     Indication: HEADACHE

REACTIONS (5)
  - Accidental overdose [Unknown]
  - Product use issue [Unknown]
  - Hallucination [Unknown]
  - Drug administered to patient of inappropriate age [Unknown]
  - Mydriasis [Unknown]

NARRATIVE: CASE EVENT DATE: 20161219
